FAERS Safety Report 5040434-8 (Version None)
Quarter: 2006Q2

REPORT INFORMATION
  Report Type: 
  Country: None (occurrence: None)
  Receive Date: 20060630
  Receipt Date: 20060118
  Transmission Date: 20061013
  Serious: Yes (Life-Threatening)
  Sender: FDA-Public Use
  Company Number: HQWYE432719JAN06

PATIENT
  Sex: Female

DRUGS (14)
  1. ENBREL [Suspect]
     Indication: RHEUMATOID ARTHRITIS
     Route: 058
     Dates: start: 20051209, end: 20060117
  2. ENBREL [Suspect]
     Route: 058
     Dates: start: 20060118, end: 20060124
  3. ENBREL [Suspect]
     Route: 058
     Dates: start: 20060125, end: 20060131
  4. ENBREL [Suspect]
     Route: 058
     Dates: start: 20060201
  5. PROGRAF [Concomitant]
     Indication: RHEUMATOID ARTHRITIS
     Route: 048
     Dates: start: 20051122, end: 20060118
  6. PROGRAF [Concomitant]
     Route: 048
     Dates: start: 20060118, end: 20060118
  7. DECADRON [Concomitant]
     Indication: RHEUMATOID ARTHRITIS
     Dosage: UNKNOWN
     Route: 051
  8. XYLOCAINE [Concomitant]
     Indication: RHEUMATOID ARTHRITIS
     Dosage: UNKNOWN
     Route: 051
  9. RINDERON-VG [Concomitant]
     Dosage: UNKNOWN
     Route: 061
  10. SELBEX [Concomitant]
     Dosage: UNKNOWN
     Route: 048
  11. PREDNISOLONE [Concomitant]
     Indication: RHEUMATOID ARTHRITIS
     Dosage: UNKNOWN
     Route: 048
  12. ADOFEED [Concomitant]
     Indication: RHEUMATOID ARTHRITIS
     Dosage: UNKNOWN
     Route: 048
  13. HYALURONATE SODIUM [Concomitant]
     Indication: RHEUMATOID ARTHRITIS
     Dosage: UNKNOWN
     Route: 051
  14. SOLETON [Concomitant]
     Indication: RHEUMATOID ARTHRITIS
     Dosage: UNKNOWN
     Route: 048

REACTIONS (3)
  - ALOPECIA [None]
  - CONDITION AGGRAVATED [None]
  - PULMONARY ARTERY ANEURYSM [None]
